FAERS Safety Report 8910012 (Version 2)
Quarter: 2013Q1

REPORT INFORMATION
  Report Type: Report from Study
  Country: US (occurrence: US)
  Receive Date: 20121115
  Receipt Date: 20130225
  Transmission Date: 20140127
  Serious: No
  Sender: FDA-Public Use
  Company Number: US-VERTEX PHARMACEUTICAL INC.-2012-024355

PATIENT
  Age: 9 Year
  Sex: Male

DRUGS (2)
  1. VX-770 [Suspect]
     Indication: CYSTIC FIBROSIS
     Dosage: 150 MG, BID
     Dates: start: 20120411
  2. FLAGYL [Suspect]

REACTIONS (3)
  - Malabsorption [Not Recovered/Not Resolved]
  - Weight gain poor [Unknown]
  - Frequent bowel movements [Not Recovered/Not Resolved]
